FAERS Safety Report 6083847-8 (Version None)
Quarter: 2009Q1

REPORT INFORMATION
  Report Type: 
  Country: None (occurrence: None)
  Receive Date: 20090219
  Receipt Date: 20090206
  Transmission Date: 20090719
  Serious: Yes (Hospitalization, Other)
  Sender: FDA-Public Use
  Company Number: CA-ELI_LILLY_AND_COMPANY-CA200902001774

PATIENT
  Age: 71 Year
  Sex: Female

DRUGS (8)
  1. FORTEO [Suspect]
     Indication: OSTEOPOROSIS
     Dosage: 20 UG, DAILY (1/D)
     Dates: start: 20080205
  2. GLUCONORM [Concomitant]
  3. ISOPROPYL ALCOHOL COMPOUND LIQUID [Concomitant]
  4. ASAPHEN [Concomitant]
  5. PREDNISONE [Concomitant]
  6. CALCIUM CARBONATE [Concomitant]
  7. POTASSIUM CHLORIDE [Concomitant]
  8. PROPAFENONE HCL [Concomitant]

REACTIONS (1)
  - RENAL FAILURE [None]
